FAERS Safety Report 7999207-6 (Version None)
Quarter: 2011Q4

REPORT INFORMATION
  Report Type: 
  Country: None (occurrence: None)
  Receive Date: 20111221
  Receipt Date: 20111215
  Transmission Date: 20120403
  Serious: Yes (Death, Hospitalization)
  Sender: FDA-Public Use
  Company Number: ES-EISAI INC-E3810-05200-SPO-ES

PATIENT
  Age: 87 Year
  Sex: Male

DRUGS (6)
  1. LIDALTRIN DIU [Suspect]
     Indication: HYPERTENSION
     Dosage: UNKNOWN
     Route: 048
  2. ACIPHEX [Suspect]
     Indication: PROPHYLAXIS
     Route: 048
     Dates: end: 20081221
  3. ASPIRIN [Concomitant]
     Indication: PROPHYLAXIS
     Route: 048
  4. FUROSEMIDE [Concomitant]
     Indication: HYPERTENSION
     Route: 048
  5. DIGOXIN [Suspect]
     Indication: ATRIAL FIBRILLATION
     Route: 048
     Dates: start: 20010320
  6. ACTONEL [Concomitant]
     Dosage: UNKNOWN
     Route: 048
     Dates: start: 20070320

REACTIONS (2)
  - RENAL FAILURE ACUTE [None]
  - TOXICITY TO VARIOUS AGENTS [None]
